FAERS Safety Report 24982946 (Version 1)
Quarter: 2025Q1

REPORT INFORMATION
  Report Type: Spontaneous
  Country: ID (occurrence: ID)
  Receive Date: 20250218
  Receipt Date: 20250218
  Transmission Date: 20250409
  Serious: Yes (Death, Other)
  Sender: MITSUBISHI TANABE PHARMA
  Company Number: ID-MTPC-MTPA2025-0003139

PATIENT
  Age: 57 Year
  Sex: Male

DRUGS (1)
  1. RADICAVA [Suspect]
     Active Substance: EDARAVONE
     Indication: Amyotrophic lateral sclerosis
     Route: 042
     Dates: start: 20240921, end: 202411

REACTIONS (2)
  - Respiratory failure [Fatal]
  - Disease progression [Fatal]

NARRATIVE: CASE EVENT DATE: 20241201
